FAERS Safety Report 9094275 (Version 2)
Quarter: 2013Q2

REPORT INFORMATION
  Report Type: Spontaneous
  Country: US (occurrence: US)
  Receive Date: 20130219
  Receipt Date: 20130604
  Transmission Date: 20140414
  Serious: Yes (Other)
  Sender: FDA-Public Use
  Company Number: US-BAYER-2013-020048

PATIENT
  Age: 32 Year
  Sex: Female
  Weight: 63.49 kg

DRUGS (5)
  1. YASMIN [Suspect]
  2. OCELLA [Suspect]
     Dosage: UNK
     Dates: start: 200809
  3. ATENOLOL [Concomitant]
     Indication: HYPERTENSION
     Dosage: 50 MG, UNK
     Route: 048
     Dates: start: 2003
  4. ALPRAZOLAM [Concomitant]
     Indication: ANXIETY
     Dosage: UNK
     Dates: start: 2006
  5. FEMCON FE [Concomitant]
     Indication: CONTRACEPTION
     Dosage: UNK
     Dates: start: 20080528

REACTIONS (9)
  - Deep vein thrombosis [Recovering/Resolving]
  - Pain in extremity [Recovering/Resolving]
  - Muscle swelling [Recovering/Resolving]
  - Injury [Recovering/Resolving]
  - Pain [Recovering/Resolving]
  - General physical health deterioration [Recovering/Resolving]
  - Emotional distress [None]
  - Anxiety [None]
  - Pain [None]
